FAERS Safety Report 7312263-3 (Version None)
Quarter: 2011Q1

REPORT INFORMATION
  Report Type: 
  Country: None (occurrence: None)
  Receive Date: 20110224
  Receipt Date: 20110216
  Transmission Date: 20110831
  Serious: Yes (Hospitalization)
  Sender: FDA-Public Use
  Company Number: A0914977A

PATIENT
  Age: 49 Year
  Sex: Male

DRUGS (2)
  1. ADVAIR DISKUS 100/50 [Suspect]
     Route: 065
     Dates: start: 20091006
  2. VENTOLIN [Suspect]
     Route: 065
     Dates: start: 20091006

REACTIONS (2)
  - LUNG DISORDER [None]
  - POLYP [None]
